FAERS Safety Report 17665059 (Version 1)
Quarter: 2020Q2

REPORT INFORMATION
  Report Type: Spontaneous
  Country: CZ (occurrence: CZ)
  Receive Date: 20200414
  Receipt Date: 20200414
  Transmission Date: 20200713
  Serious: Yes (Hospitalization)
  Sender: FDA-Public Use
  Company Number: CZ-ACCORD-178877

PATIENT
  Age: 41 Year
  Sex: Male
  Weight: 51 kg

DRUGS (1)
  1. CISPLATIN. [Suspect]
     Active Substance: CISPLATIN
     Indication: TONSIL CANCER
     Dosage: 1 X WEEK IN 6 SERIES, LOWER DOSE 50 MG BASED ON BSA
     Dates: start: 201702

REACTIONS (1)
  - Haematotoxicity [Unknown]

NARRATIVE: CASE EVENT DATE: 2017
